FAERS Safety Report 8888652 (Version 4)
Quarter: 2013Q4

REPORT INFORMATION
  Report Type: Report from Study
  Country: JP (occurrence: JP)
  Receive Date: 20121106
  Receipt Date: 20131209
  Transmission Date: 20140711
  Serious: Yes (Hospitalization, Other)
  Sender: FDA-Public Use
  Company Number: JP-SHIRE-ALL1-2012-05318

PATIENT
  Age: 67 Year
  Sex: Male

DRUGS (23)
  1. 405 (LANTHANUM CARBONATE) [Suspect]
     Indication: HYPERPHOSPHATAEMIA
     Dosage: 1000 MG, UNKNOWN (IMMEDIATELY AFTER MEALS)
     Route: 048
     Dates: start: 20110720, end: 20120712
  2. 405 (LANTHANUM CARBONATE) [Suspect]
     Dosage: 500 MG, OTHER (IMMEDIATELY AFTER MEALS)
     Route: 048
     Dates: start: 20090819, end: 20110719
  3. 405 (LANTHANUM CARBONATE) [Suspect]
     Indication: HYPERPHOSPHATAEMIA
     Dosage: 500 MG, UNKNOWN
     Route: 048
     Dates: start: 20120713
  4. CALTAN [Concomitant]
     Indication: HYPERPHOSPHATAEMIA
     Dosage: 3000 MG, OTHER (PER DAY)
     Route: 048
     Dates: start: 20080222, end: 20110705
  5. CALTAN [Concomitant]
     Dosage: 4500 MG, OTHER (PER DAY)
     Route: 048
     Dates: start: 20110706, end: 20110802
  6. CALTAN [Concomitant]
     Dosage: 6000 MG, OTHER (PER DAY)
     Route: 048
     Dates: start: 20110803, end: 20120209
  7. CALTAN [Concomitant]
     Dosage: 3000 MG, OTHER (PER DAY)
     Route: 048
     Dates: start: 20120210, end: 20120702
  8. RENAGEL                            /01459901/ [Concomitant]
     Indication: HYPERPHOSPHATAEMIA
     Dosage: 2250 MG, OTHER (PER DAY)
     Route: 048
     Dates: start: 20080811, end: 20110613
  9. RENAGEL                            /01459901/ [Concomitant]
     Dosage: 1000 MG, OTHER (PER DAY)
     Route: 048
     Dates: start: 20120210, end: 20120228
  10. RENAGEL                            /01459901/ [Concomitant]
     Dosage: 500 MG, OTHER (PER DAY)
     Route: 048
     Dates: start: 20120229
  11. ROCALTROL [Concomitant]
     Indication: BONE METABOLISM DISORDER
     Dosage: 0.25 ?G, UNKNOWN
     Route: 048
     Dates: start: 20080215, end: 20121003
  12. PURSENNID                          /00142207/ [Concomitant]
     Indication: PRODUCT USED FOR UNKNOWN INDICATION
     Dosage: 24 MG, UNKNOWN
     Route: 048
  13. LENDORMIN DAINIPPO [Concomitant]
     Indication: PRODUCT USED FOR UNKNOWN INDICATION
     Dosage: 0.25 MG, UNKNOWN
     Route: 048
  14. HERBAL EXTRACT NOS [Concomitant]
     Indication: PRODUCT USED FOR UNKNOWN INDICATION
     Dosage: 6 G, UNKNOWN
     Route: 048
  15. ZYLORIC [Concomitant]
     Indication: PRODUCT USED FOR UNKNOWN INDICATION
     Dosage: 100 MG, UNKNOWN
     Route: 048
  16. THYRADIN S [Concomitant]
     Indication: PRODUCT USED FOR UNKNOWN INDICATION
     Dosage: 50 ?G, UNKNOWN
     Route: 048
  17. ALLELOCK [Concomitant]
     Indication: PRODUCT USED FOR UNKNOWN INDICATION
     Dosage: 5 MG, UNKNOWN
     Route: 048
  18. OMEPRAL                            /00661201/ [Concomitant]
     Indication: PRODUCT USED FOR UNKNOWN INDICATION
     Dosage: 20 MG, UNKNOWN
     Route: 048
  19. DOPS [Concomitant]
     Indication: PRODUCT USED FOR UNKNOWN INDICATION
     Dosage: 200 MG, UNKNOWN
     Route: 048
  20. METLIGINE D [Concomitant]
     Indication: PRODUCT USED FOR UNKNOWN INDICATION
     Dosage: 2 MG, UNKNOWN
     Route: 048
  21. DIHYDERGOT                         /00017802/ [Concomitant]
     Indication: PRODUCT USED FOR UNKNOWN INDICATION
     Dosage: 1 MG, UNKNOWN
     Route: 048
  22. NESP [Concomitant]
     Indication: PRODUCT USED FOR UNKNOWN INDICATION
     Dosage: UNK, UNKNOWN
     Route: 042
  23. ALFAROL [Concomitant]
     Indication: PRODUCT USED FOR UNKNOWN INDICATION
     Dosage: 0.25 ?G, UNKNOWN
     Route: 048
     Dates: start: 20121004

REACTIONS (5)
  - Enterocolitis [Recovering/Resolving]
  - Arteriosclerosis coronary artery [Unknown]
  - Chest pain [Recovering/Resolving]
  - Pseudomembranous colitis [Unknown]
  - Gastroenteritis [Recovered/Resolved]
